FAERS Safety Report 4415545-8 (Version None)
Quarter: 2004Q2

REPORT INFORMATION
  Report Type: 
  Country: None (occurrence: None)
  Receive Date: 20040630
  Receipt Date: 20040219
  Transmission Date: 20050107
  Serious: Yes (Hospitalization, Other)
  Sender: FDA-Public Use
  Company Number: 2003122132

PATIENT
  Age: 13 Year
  Sex: Female

DRUGS (3)
  1. ZOLOFT [Suspect]
     Indication: DEPRESSION
     Dosage: 12.5 MG (DAILY), ORAL
     Route: 048
     Dates: start: 20031101, end: 20031101
  2. BUPROPION HYDROCHLORIDE [Suspect]
     Indication: ILL-DEFINED DISORDER
     Dosage: 75 MG (DAILY), UNKNOWN
     Dates: start: 20031206, end: 20031211
  3. PAROXETINE HCL [Concomitant]

REACTIONS (23)
  - ASTHENIA [None]
  - BACK PAIN [None]
  - BIPOLAR II DISORDER [None]
  - CHEST PAIN [None]
  - COUGH [None]
  - DECREASED APPETITE [None]
  - DISTURBANCE IN ATTENTION [None]
  - DIZZINESS [None]
  - HOMICIDAL IDEATION [None]
  - HYPERHIDROSIS [None]
  - HYPERSENSITIVITY [None]
  - INCREASED APPETITE [None]
  - INFLUENZA LIKE ILLNESS [None]
  - INSOMNIA [None]
  - LYMPHADENOPATHY [None]
  - NECK PAIN [None]
  - NIGHTMARE [None]
  - PYREXIA [None]
  - RASH [None]
  - RENAL PAIN [None]
  - SUICIDAL IDEATION [None]
  - SWELLING FACE [None]
  - VISION BLURRED [None]
